FAERS Safety Report 14918820 (Version 1)
Quarter: 2018Q2

REPORT INFORMATION
  Report Type: Spontaneous
  Country: US (occurrence: US)
  Receive Date: 20180502
  Receipt Date: 20180502
  Transmission Date: 20180711
  Serious: Yes (Life-Threatening, Hospitalization)
  Sender: FDA-Public Use
  Company Number: None

PATIENT
  Age: 57 Year
  Sex: Male

DRUGS (1)
  1. CAPECITABINE TAB 500MG [Suspect]
     Active Substance: CAPECITABINE

REACTIONS (7)
  - Fatigue [None]
  - Dry skin [None]
  - Dry mouth [None]
  - Vomiting [None]
  - Tremor [None]
  - Thrombosis [None]
  - Skin fissures [None]

NARRATIVE: CASE EVENT DATE: 20180502
